FAERS Safety Report 15298422 (Version 1)
Quarter: 2018Q3

REPORT INFORMATION
  Report Type: Spontaneous
  Country: US (occurrence: US)
  Receive Date: 20180820
  Receipt Date: 20180820
  Transmission Date: 20181010
  Serious: Yes (Other)
  Sender: FDA-Public Use
  Company Number: US-ALLERGAN-1840468US

PATIENT
  Sex: Male
  Weight: 1.54 kg

DRUGS (3)
  1. URSODEOXYCHOLIC ACID UNK [Suspect]
     Active Substance: URSODIOL
     Indication: MATERNAL EXPOSURE TIMING UNSPECIFIED
     Dosage: 300 MG, TID
     Route: 064
  2. URSODEOXYCHOLIC ACID UNK [Suspect]
     Active Substance: URSODIOL
     Dosage: 300 MG, QID
     Route: 064
  3. RIFAMPIN. [Suspect]
     Active Substance: RIFAMPIN
     Indication: MATERNAL EXPOSURE TIMING UNSPECIFIED
     Dosage: 300 MG, BID
     Route: 064

REACTIONS (3)
  - Foetal exposure during pregnancy [Unknown]
  - Premature baby [Unknown]
  - Low birth weight baby [Unknown]
